FAERS Safety Report 6191486-3 (Version None)
Quarter: 2009Q2

REPORT INFORMATION
  Report Type: 
  Country: None (occurrence: None)
  Receive Date: 20090515
  Receipt Date: 20090513
  Transmission Date: 20091009
  Serious: Yes (Congenital Anomaly)
  Sender: FDA-Public Use
  Company Number: GB-ASTRAZENECA-2009GB01104

PATIENT
  Age: 0 Week
  Sex: Female

DRUGS (1)
  1. SYMBICORT [Suspect]
     Indication: ASTHMA
     Dosage: MOTHER RECEIVED 200-6 UG 2 PUFFS TWICE DAILY
     Route: 064
     Dates: start: 20040801

REACTIONS (1)
  - TRANSPOSITION OF THE GREAT VESSELS [None]
